FAERS Safety Report 11435813 (Version 1)
Quarter: 2015Q3

REPORT INFORMATION
  Report Type: Spontaneous
  Country: US (occurrence: US)
  Receive Date: 20150821
  Receipt Date: 20150821
  Transmission Date: 20151125
  Serious: No
  Sender: FDA-Public Use
  Company Number: US-ELI_LILLY_AND_COMPANY-US201401001720

PATIENT
  Age: 55 Year
  Sex: Male

DRUGS (4)
  1. ALEVE [Interacting]
     Active Substance: NAPROXEN SODIUM
     Indication: PAIN
     Dosage: 1 DF, UNKNOWN
     Route: 065
  2. TYLENOL [Interacting]
     Active Substance: ACETAMINOPHEN
     Indication: PAIN
     Dosage: 1 DF, UNKNOWN
     Route: 065
  3. CIALIS [Suspect]
     Active Substance: TADALAFIL
     Indication: BENIGN PROSTATIC HYPERPLASIA
     Dosage: 5 MG, QD
     Route: 065
     Dates: start: 2012
  4. BC [Interacting]
     Active Substance: ASPIRIN\CAFFEINE
     Indication: PAIN
     Dosage: 1 DF, UNKNOWN
     Route: 065

REACTIONS (6)
  - Pruritus [Unknown]
  - Drug hypersensitivity [Unknown]
  - Drug interaction [Unknown]
  - Urticaria [Unknown]
  - Pain [Recovered/Resolved]
  - Nasopharyngitis [Recovered/Resolved]

NARRATIVE: CASE EVENT DATE: 201303
